FAERS Safety Report 4550008-0 (Version None)
Quarter: 2005Q1

REPORT INFORMATION
  Report Type: 
  Country: None (occurrence: None)
  Receive Date: 20050111
  Receipt Date: 20050111
  Transmission Date: 20050727
  Serious: Yes (Other)
  Sender: FDA-Public Use
  Company Number: None

PATIENT
  Age: 81 Year
  Sex: Male
  Weight: 75.7507 kg

DRUGS (1)
  1. TRAVOPROST 0.004 % OPHTH SOLN [Suspect]
     Indication: GLAUCOMA
     Dosage: ONE GTT OV Q PM
     Dates: start: 20040707, end: 20041119

REACTIONS (2)
  - DRY EYE [None]
  - EYE PRURITUS [None]
